FAERS Safety Report 10265457 (Version 1)
Quarter: 2014Q2

REPORT INFORMATION
  Report Type: Spontaneous
  Country: US (occurrence: US)
  Receive Date: 20140627
  Receipt Date: 20140627
  Transmission Date: 20141212
  Serious: Yes (Hospitalization)
  Sender: FDA-Public Use
  Company Number: US-TEVA-491060USA

PATIENT
  Age: 74 Year
  Sex: Male

DRUGS (2)
  1. BENDAMUSTINE [Suspect]
     Indication: CHRONIC LYMPHOCYTIC LEUKAEMIA
     Route: 065
     Dates: start: 2010, end: 201211
  2. RITUXIMAB [Suspect]
     Indication: CHRONIC LYMPHOCYTIC LEUKAEMIA
     Dosage: UNK, UNKNOWN FREQ.
     Route: 065
     Dates: start: 2010, end: 201211

REACTIONS (5)
  - Reflux laryngitis [Recovering/Resolving]
  - Dysphagia [Recovering/Resolving]
  - Febrile neutropenia [Unknown]
  - Actinomycosis [Unknown]
  - Odynophagia [Unknown]
